FAERS Safety Report 11840621 (Version 2)
Quarter: 2016Q1

REPORT INFORMATION
  Report Type: Spontaneous
  Country: RO (occurrence: RO)
  Receive Date: 20151216
  Receipt Date: 20160118
  Transmission Date: 20160525
  Serious: Yes (Hospitalization, Other)
  Sender: FDA-Public Use
  Company Number: RO-ROCHE-1609370

PATIENT
  Sex: Female
  Weight: 96 kg

DRUGS (3)
  1. CARBOPLATIN. [Concomitant]
     Active Substance: CARBOPLATIN
     Indication: BREAST CANCER
  2. HERCEPTIN [Suspect]
     Active Substance: TRASTUZUMAB
     Indication: BREAST CANCER
     Dosage: 576MG/3 WEEKS
     Route: 042
     Dates: start: 20131215, end: 20141222
  3. TAXOTERE [Concomitant]
     Active Substance: DOCETAXEL
     Indication: BREAST CANCER

REACTIONS (4)
  - Renal colic [Unknown]
  - Abortion spontaneous [Unknown]
  - Cervical incompetence [Unknown]
  - Maternal exposure during pregnancy [Unknown]
